FAERS Safety Report 8052085-1 (Version None)
Quarter: 2012Q1

REPORT INFORMATION
  Report Type: 
  Country: None (occurrence: None)
  Receive Date: 20120118
  Receipt Date: 20120112
  Transmission Date: 20120608
  Serious: No
  Sender: FDA-Public Use
  Company Number: US-PFIZER INC-2012010276

PATIENT

DRUGS (2)
  1. MYSOLINE [Concomitant]
     Dosage: UNK
  2. ANTIVERT [Suspect]
     Dosage: 25 MG, 3X/DAY

REACTIONS (6)
  - DIZZINESS [None]
  - TENDON INJURY [None]
  - DEHYDRATION [None]
  - ACTIVITIES OF DAILY LIVING IMPAIRED [None]
  - VOMITING [None]
  - FEELING DRUNK [None]
